FAERS Safety Report 5315581-3 (Version None)
Quarter: 2007Q2

REPORT INFORMATION
  Report Type: 
  Country: None (occurrence: None)
  Receive Date: 20070503
  Receipt Date: 20070423
  Transmission Date: 20071010
  Serious: Yes (Life-Threatening)
  Sender: FDA-Public Use
  Company Number: NO-ELI_LILLY_AND_COMPANY-NO200704004885

PATIENT
  Age: 29 Year
  Sex: Male

DRUGS (4)
  1. ZYPREXA [Suspect]
     Indication: MANIA
     Dosage: 30 MG, DAILY (1/D)
     Route: 065
     Dates: start: 20070307, end: 20070323
  2. LITHIONIT [Interacting]
     Indication: BIPOLAR DISORDER
     Dosage: 83 MG MORNING + 166 MG EVENING (DAILY)
     Route: 048
     Dates: start: 20070315
  3. RIVOTRIL [Concomitant]
     Indication: MANIA
     Dosage: 2 MG, DAILY (1/D)
     Route: 048
     Dates: start: 20070307
  4. VALPROATE SODIUM [Concomitant]
     Indication: BIPOLAR DISORDER
     Dosage: 2400 MG, DAILY (1/D)
     Route: 065
     Dates: start: 20070310

REACTIONS (4)
  - DRUG INTERACTION [None]
  - LEUKOPENIA [None]
  - NEUROLEPTIC MALIGNANT SYNDROME [None]
  - PRESCRIBED OVERDOSE [None]
